FAERS Safety Report 10506777 (Version 2)
Quarter: 2014Q4

REPORT INFORMATION
  Report Type: Spontaneous
  Country: RO (occurrence: RO)
  Receive Date: 20141009
  Receipt Date: 20141030
  Transmission Date: 20150528
  Serious: Yes (Other)
  Sender: FDA-Public Use
  Company Number: RO-AMGEN-ROUSP2014076983

PATIENT
  Age: 30 Year
  Sex: Male

DRUGS (3)
  1. ENBREL [Suspect]
     Active Substance: ETANERCEPT
     Indication: PSORIATIC ARTHROPATHY
     Dosage: 50 MG, WEEKLY
     Route: 058
     Dates: start: 2008
  2. ARAVA [Concomitant]
     Active Substance: LEFLUNOMIDE
     Dosage: UNK
  3. ARCOXIA [Concomitant]
     Active Substance: ETORICOXIB
     Dosage: UNK

REACTIONS (1)
  - Arthropathy [Recovered/Resolved]
